FAERS Safety Report 26162364 (Version 1)
Quarter: 2025Q4

REPORT INFORMATION
  Report Type: Spontaneous
  Country: US (occurrence: US)
  Receive Date: 20251216
  Receipt Date: 20251216
  Transmission Date: 20260118
  Serious: Yes (Hospitalization)
  Sender: DR REDDYS
  Company Number: US-DRL-USA-USA/2025/12/018969

PATIENT
  Age: 24 Year
  Sex: Male

DRUGS (2)
  1. DESMOPRESSIN [Suspect]
     Active Substance: DESMOPRESSIN
     Indication: Polyuria
     Dosage: 2 MCG THREE TIMES DAILY
     Route: 042
  2. DESMOPRESSIN [Suspect]
     Active Substance: DESMOPRESSIN
     Dosage: 2 MCG THREE TIMES DAILY
     Route: 042

REACTIONS (2)
  - Drug ineffective [Unknown]
  - Hyponatraemia [Recovered/Resolved]
